FAERS Safety Report 22047418 (Version 1)
Quarter: 2023Q1

REPORT INFORMATION
  Report Type: Report from Study
  Country: US (occurrence: US)
  Receive Date: 20230301
  Receipt Date: 20230301
  Transmission Date: 20230418
  Serious: Yes (Hospitalization, Other)
  Sender: FDA-Public Use
  Company Number: US-NPS_Pharmaceuticals-001498

PATIENT
  Age: 48 Year
  Sex: Male
  Weight: 58.5 kg

DRUGS (26)
  1. TEDUGLUTIDE [Suspect]
     Active Substance: TEDUGLUTIDE
     Indication: Short-bowel syndrome
     Dosage: 2.5 MILLIGRAM, QD
     Route: 058
     Dates: start: 20131203, end: 20140114
  2. TEDUGLUTIDE [Suspect]
     Active Substance: TEDUGLUTIDE
     Indication: Short-bowel syndrome
     Dosage: 2.5 MILLIGRAM, QD
     Route: 058
     Dates: start: 20131203, end: 20140114
  3. TEDUGLUTIDE [Suspect]
     Active Substance: TEDUGLUTIDE
     Indication: Short-bowel syndrome
     Dosage: 2.5 MILLIGRAM, QD
     Route: 058
     Dates: start: 20131203, end: 20140114
  4. TEDUGLUTIDE [Suspect]
     Active Substance: TEDUGLUTIDE
     Indication: Short-bowel syndrome
     Dosage: 2.5 MILLIGRAM, QD
     Route: 058
     Dates: start: 20131203, end: 20140114
  5. TEDUGLUTIDE [Suspect]
     Active Substance: TEDUGLUTIDE
     Dosage: 2.5 MILLIGRAM, QD
     Route: 042
     Dates: start: 20140121, end: 20141112
  6. TEDUGLUTIDE [Suspect]
     Active Substance: TEDUGLUTIDE
     Dosage: 2.5 MILLIGRAM, QD
     Route: 042
     Dates: start: 20140121, end: 20141112
  7. TEDUGLUTIDE [Suspect]
     Active Substance: TEDUGLUTIDE
     Dosage: 2.5 MILLIGRAM, QD
     Route: 042
     Dates: start: 20140121, end: 20141112
  8. TEDUGLUTIDE [Suspect]
     Active Substance: TEDUGLUTIDE
     Dosage: 2.5 MILLIGRAM, QD
     Route: 042
     Dates: start: 20140121, end: 20141112
  9. TEDUGLUTIDE [Suspect]
     Active Substance: TEDUGLUTIDE
     Dosage: 1.6 MILLIGRAM, QD
     Route: 042
     Dates: start: 20141113, end: 201501
  10. TEDUGLUTIDE [Suspect]
     Active Substance: TEDUGLUTIDE
     Dosage: 1.6 MILLIGRAM, QD
     Route: 042
     Dates: start: 20141113, end: 201501
  11. TEDUGLUTIDE [Suspect]
     Active Substance: TEDUGLUTIDE
     Dosage: 1.6 MILLIGRAM, QD
     Route: 042
     Dates: start: 20141113, end: 201501
  12. TEDUGLUTIDE [Suspect]
     Active Substance: TEDUGLUTIDE
     Dosage: 1.6 MILLIGRAM, QD
     Route: 042
     Dates: start: 20141113, end: 201501
  13. TPN [Concomitant]
     Active Substance: AMINO ACIDS\DEXTROSE\ELECTROLYTES NOS\SOYBEAN OIL
     Indication: Short-bowel syndrome
     Dosage: 1.56 L, 6 DAYS A WEEK
     Route: 051
     Dates: start: 20131126
  14. HYDROMORPHONE [Concomitant]
     Active Substance: HYDROMORPHONE
     Indication: Crohn^s disease
     Dosage: 4 MG, AS REQ^D
     Route: 048
     Dates: start: 20090812
  15. FENTANYL [Concomitant]
     Active Substance: FENTANYL
     Indication: Crohn^s disease
     Dosage: 1 DF, EVERY 3 DAYS
     Route: 062
     Dates: start: 2008
  16. MAGNESIUM SULFATE [Concomitant]
     Active Substance: MAGNESIUM SULFATE
     Indication: Short-bowel syndrome
     Dosage: 2 G, AS REQ^D
     Route: 042
     Dates: start: 201405
  17. VITAMIN D [Concomitant]
     Active Substance: VITAMIN D NOS
     Indication: Crohn^s disease
     Dosage: 2000 DF, 2X/DAY:BID
     Route: 048
     Dates: start: 20140125
  18. LOVENOX [Concomitant]
     Active Substance: ENOXAPARIN SODIUM
     Indication: Thrombosis
     Dosage: 60 MG, 2X/DAY:BID
     Route: 058
     Dates: start: 20090812
  19. NYSTATIN [Concomitant]
     Active Substance: NYSTATIN
     Indication: Antifungal prophylaxis
     Dosage: 1 DF, 1X/DAY:QD
     Route: 061
     Dates: start: 20111116
  20. VITAMIN B12 [Concomitant]
     Active Substance: CYANOCOBALAMIN
     Indication: Short-bowel syndrome
     Dosage: 1000 DF, MONTHLY
     Route: 058
     Dates: start: 2011
  21. RIFAMPIN [Concomitant]
     Active Substance: RIFAMPIN
     Indication: Vascular device infection
     Dosage: 600 MG, 1X/DAY:QD
     Route: 048
     Dates: start: 20120217
  22. DAPTOMYCIN [Concomitant]
     Active Substance: DAPTOMYCIN
     Indication: Bacteraemia
     Dosage: 410 MG, 1X/DAY:QD
     Route: 042
     Dates: start: 20080827
  23. HEPARIN [Concomitant]
     Active Substance: HEPARIN SODIUM
     Indication: Thrombosis prophylaxis
     Dosage: UNK UNK, QD
     Route: 058
     Dates: start: 20210124, end: 20210201
  24. ISAVUCONAZOLE [Concomitant]
     Active Substance: ISAVUCONAZOLE
     Indication: Device related sepsis
     Dosage: 372.00 MILLIGRAM, QD
     Route: 042
     Dates: start: 20210127, end: 20210223
  25. VANCOMYCIN [Concomitant]
     Active Substance: VANCOMYCIN
     Indication: Device related sepsis
     Dosage: 1.00 UNK, QD
     Route: 042
     Dates: start: 20210124, end: 20210125
  26. MICAFUNGIN [Concomitant]
     Active Substance: MICAFUNGIN
     Indication: Device related sepsis
     Dosage: 150.0 MILLIGRAM, QD
     Route: 042
     Dates: start: 20210131

REACTIONS (1)
  - Staphylococcal bacteraemia [Recovered/Resolved]

NARRATIVE: CASE EVENT DATE: 20140905
